FAERS Safety Report 9999309 (Version 1)
Quarter: 2014Q1

REPORT INFORMATION
  Report Type: Spontaneous
  Country: US (occurrence: None)
  Receive Date: 20140311
  Receipt Date: 20140311
  Transmission Date: 20141002
  Serious: Yes (Other)
  Sender: FDA-Public Use
  Company Number: None

PATIENT
  Age: 33 Year
  Sex: Female
  Weight: 81.65 kg

DRUGS (2)
  1. CYMBALTA [Suspect]
     Indication: NECK PAIN
     Dosage: 1 PILL 1 TIME PER DAY
     Route: 048
  2. CYMBALTA [Suspect]
     Indication: BACK PAIN
     Dosage: 1 PILL 1 TIME PER DAY
     Route: 048

REACTIONS (13)
  - Drug withdrawal syndrome [None]
  - Dysphagia [None]
  - Nausea [None]
  - Dizziness [None]
  - Hallucination [None]
  - Paraesthesia [None]
  - Muscle spasms [None]
  - Chills [None]
  - Pain [None]
  - Restlessness [None]
  - Anxiety [None]
  - Mood swings [None]
  - Decreased appetite [None]
